FAERS Safety Report 7022057-4 (Version None)
Quarter: 2010Q3

REPORT INFORMATION
  Report Type: 
  Country: None (occurrence: None)
  Receive Date: 20100930
  Receipt Date: 20100920
  Transmission Date: 20110219
  Serious: No
  Sender: FDA-Public Use
  Company Number: US-JNJFOC-20100906775

PATIENT
  Sex: Female
  Weight: 82.1 kg

DRUGS (4)
  1. SANDOZ FENTANYL TRANSDERMAL SYSTEM [Suspect]
     Indication: RADICULAR PAIN
     Route: 062
     Dates: start: 20100901
  2. GABAPENTIN [Concomitant]
     Indication: SCIATICA
     Route: 048
  3. GABAPENTIN [Concomitant]
     Route: 048
  4. GABAPENTIN [Concomitant]
     Route: 048

REACTIONS (2)
  - DRUG ADMINISTERED AT INAPPROPRIATE SITE [None]
  - WRONG TECHNIQUE IN DRUG USAGE PROCESS [None]
